FAERS Safety Report 4773540-3 (Version None)
Quarter: 2005Q3

REPORT INFORMATION
  Report Type: 
  Country: None (occurrence: None)
  Receive Date: 20050920
  Receipt Date: 20041008
  Transmission Date: 20060218
  Serious: No
  Sender: FDA-Public Use
  Company Number: US-BRISTOL-MYERS SQUIBB COMPANY-12726907

PATIENT
  Age: 66 Year
  Sex: Female
  Weight: 77 kg

DRUGS (3)
  1. BUSPAR [Suspect]
     Indication: ANXIETY
     Route: 048
  2. CHLORDIAZEPOXIDE [Suspect]
     Indication: ANXIETY
     Route: 048
     Dates: start: 20040501
  3. PRILOSEC [Concomitant]

REACTIONS (17)
  - AFFECT LABILITY [None]
  - ANOREXIA [None]
  - ASTHENIA [None]
  - CONSTIPATION [None]
  - DEPRESSION [None]
  - DISTURBANCE IN ATTENTION [None]
  - DIZZINESS [None]
  - DRUG WITHDRAWAL SYNDROME [None]
  - DYSPHEMIA [None]
  - FATIGUE [None]
  - HYPERHIDROSIS [None]
  - INSOMNIA [None]
  - MUSCLE TWITCHING [None]
  - MYALGIA [None]
  - PAIN [None]
  - VISION BLURRED [None]
  - WEIGHT DECREASED [None]
